FAERS Safety Report 4423590-1 (Version None)
Quarter: 2004Q3

REPORT INFORMATION
  Report Type: 
  Country: None (occurrence: None)
  Receive Date: 20040719
  Receipt Date: 20040422
  Transmission Date: 20050211
  Serious: Yes (Death)
  Sender: FDA-Public Use
  Company Number: M04-INT-071

PATIENT
  Age: 92 Year
  Sex: Male

DRUGS (1)
  1. INTEGRILIN [Suspect]
     Indication: STENT PLACEMENT
     Dosage: INTRAVENOUS
     Route: 042
     Dates: start: 20040201, end: 20040201

REACTIONS (1)
  - PULMONARY ALVEOLAR HAEMORRHAGE [None]
